FAERS Safety Report 25499636 (Version 1)
Quarter: 2025Q3

REPORT INFORMATION
  Report Type: Spontaneous
  Country: US (occurrence: US)
  Receive Date: 20250701
  Receipt Date: 20250701
  Transmission Date: 20251021
  Serious: No
  Sender: ORPHAZYME
  Company Number: US-ZEVRA DENMARK A/S-ORP-000549

PATIENT
  Sex: Male

DRUGS (1)
  1. MIPLYFFA [Suspect]
     Active Substance: ARIMOCLOMOL CITRATE
     Indication: Product used for unknown indication

REACTIONS (2)
  - Product size issue [Unknown]
  - Product use complaint [Unknown]
